FAERS Safety Report 14011727 (Version 2)
Quarter: 2017Q4

REPORT INFORMATION
  Report Type: Report from Study
  Country: None (occurrence: US)
  Receive Date: 20170926
  Receipt Date: 20171031
  Transmission Date: 20180321
  Serious: Yes (Hospitalization, Other)
  Sender: FDA-Public Use
  Company Number: US-ABBVIE-16K-163-1746851-00

PATIENT
  Age: 64 Year
  Sex: Male

DRUGS (1)
  1. HUMIRA [Suspect]
     Active Substance: ADALIMUMAB
     Indication: PSORIATIC ARTHROPATHY
     Route: 058
     Dates: start: 201610

REACTIONS (18)
  - Lethargy [Unknown]
  - Pneumothorax traumatic [Recovered/Resolved]
  - Clavicle fracture [Unknown]
  - Wrong technique in product usage process [Unknown]
  - Rib fracture [Recovering/Resolving]
  - Musculoskeletal pain [Recovered/Resolved]
  - Musculoskeletal stiffness [Not Recovered/Not Resolved]
  - Psoriasis [Unknown]
  - Shoulder operation [Unknown]
  - Post procedural complication [Unknown]
  - Foot fracture [Recovering/Resolving]
  - Arthralgia [Not Recovered/Not Resolved]
  - Psoriatic arthropathy [Recovering/Resolving]
  - Road traffic accident [Recovering/Resolving]
  - Device fastener issue [Unknown]
  - Drug effect incomplete [Unknown]
  - Hepatitis C [Recovering/Resolving]
  - Mobility decreased [Unknown]

NARRATIVE: CASE EVENT DATE: 201610
